FAERS Safety Report 8411923 (Version 2)
Quarter: 2013Q1

REPORT INFORMATION
  Report Type: Spontaneous
  Country: US (occurrence: US)
  Receive Date: 20120217
  Receipt Date: 20130125
  Transmission Date: 20140127
  Serious: Yes (Hospitalization, Other)
  Sender: FDA-Public Use
  Company Number: US-PFIZER INC-2012039221

PATIENT
  Age: 78 Year
  Sex: Female

DRUGS (2)
  1. VANCOMYCIN HCL [Suspect]
     Dosage: UNK
  2. PIPERACILLIN/TAZOBACTAM [Suspect]
     Dosage: UNK

REACTIONS (2)
  - Linear IgA disease [Recovered/Resolved]
  - Eosinophil count [Unknown]
